FAERS Safety Report 13304639 (Version 3)
Quarter: 2017Q2

REPORT INFORMATION
  Report Type: Spontaneous
  Country: CN (occurrence: CN)
  Receive Date: 20170308
  Receipt Date: 20170405
  Transmission Date: 20170830
  Serious: Yes (Life-Threatening)
  Sender: FDA-Public Use
  Company Number: CN-ROCHE-1901312

PATIENT
  Age: 29 Year
  Sex: Female

DRUGS (4)
  1. ROCEPHIN [Suspect]
     Active Substance: CEFTRIAXONE SODIUM
     Indication: CHOLELITHIASIS
  2. MAGNESIUM SULFATE. [Concomitant]
     Active Substance: MAGNESIUM SULFATE
     Indication: CHOLECYSTITIS
  3. MAGNESIUM SULFATE. [Concomitant]
     Active Substance: MAGNESIUM SULFATE
     Indication: CHOLELITHIASIS
  4. ROCEPHIN [Suspect]
     Active Substance: CEFTRIAXONE SODIUM
     Indication: CHOLECYSTITIS
     Dosage: FORM STRENGTH: 1G/ 50ML PER INFUSION
     Route: 041
     Dates: start: 20170207, end: 20170207

REACTIONS (3)
  - Maternal exposure during pregnancy [Unknown]
  - HELLP syndrome [Recovered/Resolved]
  - Eclampsia [Recovered/Resolved]

NARRATIVE: CASE EVENT DATE: 20170207
